FAERS Safety Report 24444206 (Version 2)
Quarter: 2024Q4

REPORT INFORMATION
  Report Type: Report from Study
  Country: CA (occurrence: CA)
  Receive Date: 20241016
  Receipt Date: 20241017
  Transmission Date: 20250115
  Serious: No
  Sender: ROCHE
  Company Number: CA-ROCHE-2334488

PATIENT
  Age: 64 Year
  Sex: Female

DRUGS (19)
  1. RITUXAN [Suspect]
     Active Substance: RITUXIMAB
     Indication: Granulomatosis with polyangiitis
     Dosage: SUBSEQUENT INFUSION DATES: 31/MAR/2021, 17/JAN/2022, 09/SEP/2022
     Route: 041
     Dates: start: 20190521
  2. RITUXAN [Suspect]
     Active Substance: RITUXIMAB
     Route: 041
  3. RITUXAN [Suspect]
     Active Substance: RITUXIMAB
     Route: 041
  4. RITUXAN [Suspect]
     Active Substance: RITUXIMAB
     Route: 041
  5. RITUXAN [Suspect]
     Active Substance: RITUXIMAB
     Route: 041
  6. RITUXAN [Suspect]
     Active Substance: RITUXIMAB
     Route: 041
  7. RITUXAN [Suspect]
     Active Substance: RITUXIMAB
     Route: 041
  8. RITUXAN [Suspect]
     Active Substance: RITUXIMAB
     Route: 041
  9. BENADRYL [Concomitant]
     Active Substance: DIPHENHYDRAMINE HYDROCHLORIDE
     Indication: Premedication
     Route: 048
     Dates: start: 20190521
  10. PANTOPRAZOLE SODIUM [Concomitant]
     Active Substance: PANTOPRAZOLE SODIUM
     Indication: Product used for unknown indication
  11. SEPTRA [Concomitant]
     Active Substance: SULFAMETHOXAZOLE\TRIMETHOPRIM
     Indication: Product used for unknown indication
  12. SOLU-MEDROL [Concomitant]
     Active Substance: METHYLPREDNISOLONE SODIUM SUCCINATE
     Indication: Premedication
     Route: 042
     Dates: start: 20190521
  13. ALENDRONATE [Concomitant]
     Active Substance: ALENDRONATE SODIUM
  14. PREDNISONE [Concomitant]
     Active Substance: PREDNISONE
  15. RAMIPRIL [Concomitant]
     Active Substance: RAMIPRIL
  16. AMLODIPINE [Concomitant]
     Active Substance: AMLODIPINE BESYLATE
  17. MAGNESIUM [Concomitant]
     Active Substance: MAGNESIUM
  18. METHOTREXATE [Concomitant]
     Active Substance: METHOTREXATE
  19. CALCIUM [Concomitant]
     Active Substance: CALCIUM

REACTIONS (17)
  - Infusion related reaction [Recovered/Resolved]
  - Heart rate irregular [Recovered/Resolved]
  - Panic reaction [Recovered/Resolved]
  - Blood pressure diastolic abnormal [Unknown]
  - Infusion related reaction [Recovering/Resolving]
  - Headache [Unknown]
  - Blood pressure systolic increased [Unknown]
  - Blood pressure systolic abnormal [Unknown]
  - Infection [Unknown]
  - Oxygen saturation decreased [Unknown]
  - Arthropathy [Recovering/Resolving]
  - Osteoarthritis [Unknown]
  - Nasopharyngitis [Recovered/Resolved]
  - Blood pressure diastolic increased [Unknown]
  - Fall [Unknown]
  - Chronic sinusitis [Unknown]
  - Spinal compression fracture [Unknown]

NARRATIVE: CASE EVENT DATE: 20190606
